FAERS Safety Report 20064419 (Version 2)
Quarter: 2021Q4

REPORT INFORMATION
  Report Type: Spontaneous
  Country: US (occurrence: US)
  Receive Date: 20211112
  Receipt Date: 20211201
  Transmission Date: 20220303
  Serious: Yes (Other)
  Sender: FDA-Public Use
  Company Number: US-BAYER-2021A246896

PATIENT
  Age: 25 Year
  Sex: Male

DRUGS (2)
  1. KOGENATE FS [Suspect]
     Active Substance: ANTIHEMOPHILIC FACTOR, HUMAN RECOMBINANT
     Dosage: 2233 U
  2. KOGENATE FS [Suspect]
     Active Substance: ANTIHEMOPHILIC FACTOR, HUMAN RECOMBINANT
     Dosage: 2233 U (TREATMENT FOR ANKLE BLEED X 1 DOSE)

REACTIONS (2)
  - Haemarthrosis [Recovered/Resolved]
  - Joint injury [None]

NARRATIVE: CASE EVENT DATE: 20211008
